FAERS Safety Report 19211186 (Version 2)
Quarter: 2021Q2

REPORT INFORMATION
  Report Type: Spontaneous
  Country: GB (occurrence: GB)
  Receive Date: 20210501
  Receipt Date: 20210517
  Transmission Date: 20210717
  Serious: Yes (Other)
  Sender: FDA-Public Use
  Company Number: GB-ACCORD-223778

PATIENT
  Age: 66 Year
  Sex: Female

DRUGS (1)
  1. AMLODIPINE [Suspect]
     Active Substance: AMLODIPINE BESYLATE
     Indication: BLOOD PRESSURE INCREASED
     Dosage: STRENGTH?10MG, 1 TABLET, ONCE DAILY
     Route: 048
     Dates: start: 20200527

REACTIONS (5)
  - Product taste abnormal [Unknown]
  - Confusional state [Unknown]
  - Product size issue [Unknown]
  - Disorientation [Unknown]
  - Foreign body in throat [Unknown]
